FAERS Safety Report 14031459 (Version 1)
Quarter: 2017Q4

REPORT INFORMATION
  Report Type: Spontaneous
  Country: DE (occurrence: DE)
  Receive Date: 20171002
  Receipt Date: 20171002
  Transmission Date: 20180321
  Serious: Yes (Other)
  Sender: FDA-Public Use
  Company Number: PHHY2017DE142472

PATIENT
  Sex: Female

DRUGS (1)
  1. COSENTYX [Suspect]
     Active Substance: SECUKINUMAB
     Indication: PRODUCT USED FOR UNKNOWN INDICATION
     Dosage: 300 MG (2 X 150) PER APPLICATION
     Route: 065
     Dates: start: 201703

REACTIONS (3)
  - Polyneuropathy [Unknown]
  - Pain in extremity [Unknown]
  - Muscle twitching [Unknown]
